FAERS Safety Report 11261711 (Version 2)
Quarter: 2015Q3

REPORT INFORMATION
  Report Type: Spontaneous
  Country: EG (occurrence: EG)
  Receive Date: 20150710
  Receipt Date: 20150713
  Transmission Date: 20151125
  Serious: Yes (Death, Hospitalization, Other)
  Sender: FDA-Public Use
  Company Number: EG-NOVOPROD-455373

PATIENT
  Age: 78 Year
  Sex: Female
  Weight: 70 kg

DRUGS (4)
  1. MIXTARD 30 HM PENFILL [Suspect]
     Active Substance: INSULIN HUMAN
     Dosage: 40 U, QD (25 U MORNING AND 15 U NIGHT)
     Route: 058
  2. MIXTARD 30 HM PENFILL [Suspect]
     Active Substance: INSULIN HUMAN
     Dosage: 40 U, QD (30 U MORNING AND 10 U NIGHT)
     Route: 058
  3. MIXTARD 30 HM PENFILL [Suspect]
     Active Substance: INSULIN HUMAN
     Indication: DIABETES MELLITUS
     Dosage: 50 U, QD (30 U MORNING AND 20 U NIGHT )
     Route: 058
  4. MIXTARD 30 HM PENFILL [Suspect]
     Active Substance: INSULIN HUMAN
     Dosage: 25 U, QD (20 UNITS AT MORNING AND 5 UNITS AT NIGHT)
     Route: 058
     Dates: end: 20150519

REACTIONS (1)
  - Otitis media [Fatal]

NARRATIVE: CASE EVENT DATE: 201408
